FAERS Safety Report 14301673 (Version 2)
Quarter: 2017Q4

REPORT INFORMATION
  Report Type: Spontaneous
  Country: PL (occurrence: PL)
  Receive Date: 20171219
  Receipt Date: 20171222
  Transmission Date: 20180321
  Serious: Yes (Death, Hospitalization, Other)
  Sender: FDA-Public Use
  Company Number: PL-JNJFOC-20171220321

PATIENT
  Age: 24 Year
  Sex: Male

DRUGS (4)
  1. NORVIR [Concomitant]
     Active Substance: RITONAVIR
     Route: 065
  2. PREZISTA [Suspect]
     Active Substance: DARUNAVIR ETHANOLATE
     Indication: HIV INFECTION
     Route: 048
  3. SULFAMETHOXAZOLE W/TRIMETHOPRIM [Concomitant]
     Active Substance: SULFAMETHOXAZOLE\TRIMETHOPRIM
     Route: 065
  4. EMTRICITABINE + TENOFOVIR DISOPROXIL FUMARATE [Concomitant]
     Route: 065

REACTIONS (7)
  - Haematuria [Unknown]
  - Hepatomegaly [Unknown]
  - Pneumonia [Fatal]
  - Anaemia [Unknown]
  - Kaposi^s sarcoma [Fatal]
  - Vitamin B12 deficiency [Unknown]
  - Folate deficiency [Unknown]
